FAERS Safety Report 8163800-0 (Version None)
Quarter: 2012Q1

REPORT INFORMATION
  Report Type: 
  Country: None (occurrence: None)
  Receive Date: 20120224
  Receipt Date: 20120220
  Transmission Date: 20120608
  Serious: Yes (Other)
  Sender: FDA-Public Use
  Company Number: CHPA2011DE015619

PATIENT
  Sex: Female
  Weight: 98 kg

DRUGS (4)
  1. CETEBE [Suspect]
     Dosage: 2 DF, BID
  2. LEVOTHYROXINE SODIUM [Concomitant]
     Dosage: 125 DAILY
  3. VOLTAREN EMULGEL ^NOVARTIS^ [Concomitant]
  4. VOLTAREN [Suspect]
     Indication: MUSCLE TIGHTNESS
     Dosage: TWICE DAILY, APPLIED FINELY
     Route: 061
     Dates: start: 20111029, end: 20111030

REACTIONS (7)
  - RASH [None]
  - DERMATITIS BULLOUS [None]
  - MYALGIA [None]
  - BLISTER [None]
  - PAIN OF SKIN [None]
  - HYPERSENSITIVITY [None]
  - PRURITUS [None]
